FAERS Safety Report 10254666 (Version 1)
Quarter: 2014Q2

REPORT INFORMATION
  Report Type: Spontaneous
  Country: US (occurrence: None)
  Receive Date: 20140620
  Receipt Date: 20140620
  Transmission Date: 20141212
  Serious: Yes (Life-Threatening)
  Sender: FDA-Public Use
  Company Number: None

PATIENT
  Age: 49 Year
  Sex: Male

DRUGS (1)
  1. TENOFOVIR [Suspect]
     Indication: HIV INFECTION
     Dosage: 1  QD ORAL
     Route: 048
     Dates: start: 20030601, end: 20140101

REACTIONS (2)
  - Proteinuria [None]
  - Blood creatinine increased [None]
